FAERS Safety Report 9012572 (Version 2)
Quarter: 2013Q1

REPORT INFORMATION
  Report Type: Spontaneous
  Country: GB (occurrence: GB)
  Receive Date: 20130114
  Receipt Date: 20130122
  Transmission Date: 20140127
  Serious: Yes (Other)
  Sender: FDA-Public Use
  Company Number: GB-PFIZER INC-2013011190

PATIENT
  Sex: Male

DRUGS (1)
  1. DEPO-MEDRONE [Suspect]
     Dosage: 40 MG, UNK
     Dates: start: 20121227

REACTIONS (10)
  - Suicidal ideation [Unknown]
  - Depression [Unknown]
  - Restlessness [Unknown]
  - Insomnia [Unknown]
  - Feeling abnormal [Unknown]
  - Asthenia [Unknown]
  - Fatigue [Unknown]
  - Pyrexia [Unknown]
  - Crying [Unknown]
  - Nervousness [Unknown]
